FAERS Safety Report 7241868-3 (Version None)
Quarter: 2011Q1

REPORT INFORMATION
  Report Type: 
  Country: None (occurrence: None)
  Receive Date: 20110124
  Receipt Date: 20110119
  Transmission Date: 20110831
  Serious: Yes (Other)
  Sender: FDA-Public Use
  Company Number: US-PFIZER INC-2011013812

PATIENT
  Sex: Female
  Weight: 54.875 kg

DRUGS (2)
  1. CHANTIX [Suspect]
     Indication: SMOKING CESSATION THERAPY
     Dosage: 0.5 MG, 1X/DAY
     Route: 048
     Dates: start: 20110111, end: 20110114
  2. ALLEGRA [Concomitant]
     Indication: HYPERSENSITIVITY
     Dosage: 60 MG, 2X/DAY
     Route: 048

REACTIONS (4)
  - PHARYNGEAL OEDEMA [None]
  - CONSTIPATION [None]
  - EYE SWELLING [None]
  - OEDEMA MOUTH [None]
